FAERS Safety Report 22388302 (Version 1)
Quarter: 2023Q2

REPORT INFORMATION
  Report Type: Spontaneous
  Country: US (occurrence: US)
  Receive Date: 20230531
  Receipt Date: 20230531
  Transmission Date: 20230721
  Serious: No
  Sender: FDA-Public Use
  Company Number: US-BAYER-2023A069423

PATIENT

DRUGS (1)
  1. CHILDREN ASTEPRO ALLERGY [Suspect]
     Active Substance: AZELASTINE HYDROCHLORIDE
     Indication: Sinusitis
     Dosage: 0.78 FLOZ 23ML 120 METERED SPRAYS

REACTIONS (2)
  - Drug effective for unapproved indication [None]
  - Adverse event [None]
